FAERS Safety Report 7272096-3 (Version None)
Quarter: 2011Q1

REPORT INFORMATION
  Report Type: 
  Country: None (occurrence: None)
  Receive Date: 20110128
  Receipt Date: 20110112
  Transmission Date: 20110831
  Serious: Yes (Death)
  Sender: FDA-Public Use
  Company Number: AUR-APL-2011-00210

PATIENT
  Age: 81 Year
  Sex: Male
  Weight: 70 kg

DRUGS (6)
  1. CLOPIDOGREL [Concomitant]
  2. SIMVASTATIN [Suspect]
     Indication: MYOCARDIAL ISCHAEMIA
     Dosage: 40MG - ORAL
     Route: 048
  3. BISOPROLOL FUMARATE [Concomitant]
  4. CLARITHROMYCIN [Concomitant]
  5. HYDROGEN SULFATE [Concomitant]
  6. OMEPRAZOLE [Concomitant]

REACTIONS (4)
  - RENAL FAILURE ACUTE [None]
  - BRONCHOPNEUMONIA [None]
  - GENERAL PHYSICAL HEALTH DETERIORATION [None]
  - DIALYSIS [None]
